FAERS Safety Report 11374283 (Version 1)
Quarter: 2015Q3

REPORT INFORMATION
  Report Type: Spontaneous
  Country: US (occurrence: None)
  Receive Date: 20150804
  Receipt Date: 20150804
  Transmission Date: 20151125
  Serious: Yes (Other)
  Sender: FDA-Public Use
  Company Number: GB-SEPTODONT-201402329

PATIENT
  Age: 27 Year
  Sex: Male

DRUGS (4)
  1. ARTICAINE WITH EPINEPHRINE 1:100,000 ARTICAINE HYDROCHLORIDE; EPINEPHRINE BITARTRATE [Suspect]
     Active Substance: ARTICAINE HYDROCHLORIDE\EPINEPHRINE BITARTRATE
     Indication: LOCAL ANAESTHESIA
     Route: 004
  2. COLGATE DURAPHAT [Suspect]
     Active Substance: SODIUM FLUORIDE
     Indication: DENTAL CARIES
     Route: 061
     Dates: start: 20140127, end: 20140128
  3. LIGNOCAINE [Concomitant]
     Active Substance: LIDOCAINE HYDROCHLORIDE
  4. MELATONIN [Concomitant]
     Active Substance: MELATONIN

REACTIONS (13)
  - Body temperature increased [None]
  - Swollen tongue [None]
  - Gingival pain [None]
  - Hypersensitivity [None]
  - Lip ulceration [None]
  - Malaise [None]
  - Chills [None]
  - Mouth ulceration [None]
  - Lip swelling [None]
  - Oedema mouth [None]
  - Tongue ulceration [None]
  - Infection [None]
  - Swelling face [None]

NARRATIVE: CASE EVENT DATE: 20140128
